FAERS Safety Report 7770116-0 (Version None)
Quarter: 2011Q3

REPORT INFORMATION
  Report Type: 
  Country: None (occurrence: None)
  Receive Date: 20110922
  Receipt Date: 20110913
  Transmission Date: 20111222
  Serious: Yes (Hospitalization)
  Sender: FDA-Public Use
  Company Number: IT-ASTRAZENECA-2011SE45316

PATIENT
  Age: 23463 Day
  Sex: Male

DRUGS (10)
  1. CARVEDILOL [Suspect]
     Route: 048
     Dates: start: 20110318
  2. POTASSIUM CHLORIDE [Concomitant]
     Route: 048
  3. COUMADIN [Concomitant]
     Route: 048
  4. LORAZEPAM [Concomitant]
     Route: 048
  5. LASIX [Suspect]
     Indication: HYPERTENSION
     Route: 048
     Dates: start: 20080101, end: 20110318
  6. ALDACTONE [Suspect]
     Indication: HYPERTENSION
     Route: 048
     Dates: start: 20110307, end: 20110318
  7. CANDESARTAN CILEXETIL [Suspect]
     Indication: CARDIAC FAILURE
     Route: 048
     Dates: start: 20080101, end: 20110318
  8. CARVEDILOL [Suspect]
     Indication: HYPERTENSION
     Route: 048
     Dates: start: 20110307, end: 20110318
  9. MAGNESIUM SULFATE [Concomitant]
     Route: 042
  10. CORDARONE [Concomitant]
     Route: 048

REACTIONS (1)
  - HYPOTENSION [None]
